FAERS Safety Report 9822281 (Version 1)
Quarter: 2014Q1

REPORT INFORMATION
  Report Type: Report from Study
  Country: ES (occurrence: ES)
  Receive Date: 20140116
  Receipt Date: 20140116
  Transmission Date: 20141002
  Serious: Yes (Hospitalization)
  Sender: FDA-Public Use
  Company Number: ES-ABBVIE-14P-144-1190045-00

PATIENT
  Age: 82 Year
  Sex: Female

DRUGS (1)
  1. DEPAKINE [Suspect]
     Indication: HEADACHE
     Route: 048
     Dates: start: 20131222, end: 20131230

REACTIONS (3)
  - Bradyphrenia [Recovered/Resolved]
  - Disorientation [Recovered/Resolved]
  - Abasia [Recovered/Resolved]
